FAERS Safety Report 17757154 (Version 2)
Quarter: 2020Q2

REPORT INFORMATION
  Report Type: Report from Study
  Country: GB (occurrence: GB)
  Receive Date: 20200507
  Receipt Date: 20200624
  Transmission Date: 20200714
  Serious: Yes (Death)
  Sender: FDA-Public Use
  Company Number: GB-PFIZER INC-2020180513

PATIENT
  Age: 53 Year
  Sex: Male

DRUGS (33)
  1. WATER FOR INJECTION [Suspect]
     Active Substance: WATER
     Dosage: UNK
     Route: 065
     Dates: end: 20200406
  2. WATER. [Suspect]
     Active Substance: WATER
     Indication: PARENTERAL NUTRITION
     Dosage: UNK
     Route: 065
     Dates: end: 20200406
  3. WATER. [Suspect]
     Active Substance: WATER
     Dosage: UNK
     Route: 065
     Dates: end: 20200406
  4. VITLIPID N [Suspect]
     Active Substance: ERGOCALCIFEROL\PHYTONADIONE\RETINOL\TOCOPHEROL
     Indication: PARENTERAL NUTRITION
     Dosage: UNK
     Route: 065
     Dates: end: 20200406
  5. CALCIUM CHLORIDE. [Suspect]
     Active Substance: CALCIUM CHLORIDE
     Dosage: 1 MMOL/ML
     Route: 065
     Dates: end: 20200406
  6. GLUCOSE [Suspect]
     Active Substance: DEXTROSE
     Indication: PARENTERAL NUTRITION
     Dosage: UNK
     Route: 065
     Dates: end: 20200406
  7. GLUCOSE [Suspect]
     Active Substance: DEXTROSE
     Dosage: UNK
     Route: 065
     Dates: end: 20200406
  8. LANSOPRAZOLE. [Concomitant]
     Active Substance: LANSOPRAZOLE
     Dosage: 60 MG, DAILY
  9. AMINOVEN [Suspect]
     Active Substance: AMINO ACIDS, SOURCE UNSPECIFIED
     Indication: PARENTERAL NUTRITION
     Dosage: UNK
     Route: 065
     Dates: end: 20200406
  10. GLUCOSE [Suspect]
     Active Substance: DEXTROSE
     Dosage: UNK
     Route: 065
     Dates: end: 20200406
  11. BACTERIOSTATIC SODIUM CHLORIDE [Suspect]
     Active Substance: SODIUM CHLORIDE
     Dosage: UNK
     Route: 065
     Dates: end: 20200406
  12. MAGNESIUM SULPHATE [MAGNESIUM SULFATE] [Suspect]
     Active Substance: MAGNESIUM SULFATE
     Indication: PARENTERAL NUTRITION
     Dosage: UNK
     Route: 065
     Dates: end: 20200406
  13. ASCORBIC ACID. [Suspect]
     Active Substance: ASCORBIC ACID
     Indication: PARENTERAL NUTRITION
     Dosage: UNK
     Route: 065
     Dates: end: 20200406
  14. CALCIUM CHLORIDE. [Suspect]
     Active Substance: CALCIUM CHLORIDE
     Indication: PARENTERAL NUTRITION
     Dosage: 1 MMOL/ML
     Route: 065
     Dates: end: 20200406
  15. SODIUM GLYCEROPHOSPHATE [Suspect]
     Active Substance: SODIUM GLYCEROPHOSPHATE
     Dosage: UNK
     Route: 065
     Dates: end: 20200406
  16. FENTANYL. [Concomitant]
     Active Substance: FENTANYL
     Dosage: PATCH
  17. OXYCODONE [Concomitant]
     Active Substance: OXYCODONE
     Dosage: 5 - 10MG
  18. POTASSIUM CHLORIDE. [Suspect]
     Active Substance: POTASSIUM CHLORIDE
     Indication: PARENTERAL NUTRITION
     Dosage: UNK
     Route: 065
     Dates: end: 20200406
  19. MAGNESIUM SULPHATE [MAGNESIUM SULFATE] [Suspect]
     Active Substance: MAGNESIUM SULFATE
     Dosage: UNK
     Route: 065
     Dates: end: 20200406
  20. ASCORBIC ACID. [Suspect]
     Active Substance: ASCORBIC ACID
     Dosage: UNK
     Route: 065
     Dates: end: 20200406
  21. FOLIC ACID/GLYCINE/NICOTINAMIDE/PANTOTHENATE SODIUM/VITAMINS NOS [SOLIVITO N] [Suspect]
     Active Substance: VITAMINS
     Indication: PARENTERAL NUTRITION
     Dosage: UNK
     Route: 065
     Dates: end: 20200406
  22. THIAMINE. [Concomitant]
     Active Substance: THIAMINE
     Dosage: 100 MG, DAILY
  23. WATER FOR INJECTION [Suspect]
     Active Substance: WATER
     Indication: PARENTERAL NUTRITION
     Dosage: UNK
     Route: 065
     Dates: end: 20200406
  24. POTASSIUM CHLORIDE. [Suspect]
     Active Substance: POTASSIUM CHLORIDE
     Dosage: UNK
     Route: 065
     Dates: end: 20200406
  25. SMOFLIPID [Suspect]
     Active Substance: FISH OIL\MEDIUM-CHAIN TRIGLYCERIDES\OLIVE OIL\SOYBEAN OIL
     Dosage: UNK
     Route: 065
     Dates: end: 20200406
  26. BACTERIOSTATIC SODIUM CHLORIDE [Suspect]
     Active Substance: SODIUM CHLORIDE
     Indication: PARENTERAL NUTRITION
     Dosage: UNK
     Route: 065
     Dates: end: 20200406
  27. FOLIC ACID/GLYCINE/NICOTINAMIDE/PANTOTHENATE SODIUM/VITAMINS NOS [SOLIVITO N] [Suspect]
     Active Substance: VITAMINS
     Dosage: UNK
     Route: 065
     Dates: end: 20200406
  28. SMOFLIPID [Suspect]
     Active Substance: FISH OIL\MEDIUM-CHAIN TRIGLYCERIDES\OLIVE OIL\SOYBEAN OIL
     Indication: PARENTERAL NUTRITION
     Dosage: UNK
     Route: 065
     Dates: end: 20200406
  29. VITAMIN B [Concomitant]
     Active Substance: VITAMIN B
     Dosage: UNK, DAILY
  30. VITLIPID N [Suspect]
     Active Substance: ERGOCALCIFEROL\PHYTONADIONE\RETINOL\TOCOPHEROL
     Dosage: UNK
     Route: 065
     Dates: end: 20200406
  31. AMINOVEN [Suspect]
     Active Substance: AMINO ACIDS, SOURCE UNSPECIFIED
     Dosage: UNK
     Route: 065
     Dates: end: 20200406
  32. SODIUM GLYCEROPHOSPHATE [Suspect]
     Active Substance: SODIUM GLYCEROPHOSPHATE
     Indication: PARENTERAL NUTRITION
     Dosage: UNK
     Route: 065
     Dates: end: 20200406
  33. VENLAFAXINE [Concomitant]
     Active Substance: VENLAFAXINE HYDROCHLORIDE
     Dosage: 150 MG, DAILY

REACTIONS (1)
  - Death [Fatal]

NARRATIVE: CASE EVENT DATE: 20200406
